FAERS Safety Report 14026431 (Version 1)
Quarter: 2017Q3

REPORT INFORMATION
  Report Type: Spontaneous
  Country: RO (occurrence: RO)
  Receive Date: 20170929
  Receipt Date: 20170929
  Transmission Date: 20171128
  Serious: Yes (Other)
  Sender: FDA-Public Use
  Company Number: RO-DRREDDYS-USA/ROM/17/0092188

PATIENT
  Age: 83 Year
  Sex: Female

DRUGS (2)
  1. ONDANSETRON [Suspect]
     Active Substance: ONDANSETRON
     Indication: VOMITING
     Route: 065
  2. PALONOSETRON [Suspect]
     Active Substance: PALONOSETRON
     Indication: VOMITING
     Route: 065

REACTIONS (2)
  - Drug ineffective [Unknown]
  - Vomiting [Unknown]
